FAERS Safety Report 10485548 (Version 1)
Quarter: 2014Q3

REPORT INFORMATION
  Report Type: Spontaneous
  Country: IT (occurrence: IT)
  Receive Date: 20140930
  Receipt Date: 20140930
  Transmission Date: 20150326
  Serious: Yes (Other)
  Sender: FDA-Public Use
  Company Number: PHHY2014IT124246

PATIENT
  Age: 29 Year
  Sex: Female

DRUGS (5)
  1. ALGINIC ACID W/SODIUM BICARBONATE [Concomitant]
  2. CITALOPRAM [Suspect]
     Active Substance: CITALOPRAM HYDROBROMIDE
     Dosage: 20 MG, QD
  3. ESCITALOPRAM [Concomitant]
     Active Substance: ESCITALOPRAM OXALATE
  4. CLEBOPRIDE [Concomitant]
  5. ESOMEPRAZOLE [Concomitant]
     Active Substance: ESOMEPRAZOLE

REACTIONS (6)
  - Libido decreased [Unknown]
  - Cognitive disorder [Unknown]
  - Fatigue [Unknown]
  - Sexual dysfunction [Unknown]
  - Orgasm abnormal [Unknown]
  - Loss of libido [Unknown]
